FAERS Safety Report 5100448-6 (Version None)
Quarter: 2006Q3

REPORT INFORMATION
  Report Type: 
  Country: None (occurrence: None)
  Receive Date: 20060731
  Receipt Date: 20060617
  Transmission Date: 20061208
  Serious: No
  Sender: FDA-Public Use
  Company Number: 2006PV015824

PATIENT
  Age: 51 Year
  Sex: Female
  Weight: 101.1521 kg

DRUGS (4)
  1. BYETTA [Suspect]
     Indication: DIABETES MELLITUS NON-INSULIN-DEPENDENT
     Dosage: 5 MCG;BID;SC
     Route: 058
     Dates: start: 20060607
  2. METFORMIN HCL [Concomitant]
  3. AVANDIA [Concomitant]
  4. AMARYL [Concomitant]

REACTIONS (6)
  - HEADACHE [None]
  - LISTLESS [None]
  - MEDICATION ERROR [None]
  - NAUSEA [None]
  - VOMITING [None]
  - WEIGHT DECREASED [None]
